FAERS Safety Report 20743901 (Version 2)
Quarter: 2022Q2

REPORT INFORMATION
  Report Type: Spontaneous
  Country: CA (occurrence: CA)
  Receive Date: 20220425
  Receipt Date: 20220427
  Transmission Date: 20220721
  Serious: Yes (Other)
  Sender: FDA-Public Use
  Company Number: CA-PFIZER INC-202200342213

PATIENT
  Age: 62 Year
  Sex: Male
  Weight: 90 kg

DRUGS (13)
  1. RUXIENCE [Suspect]
     Active Substance: RITUXIMAB-PVVR
     Indication: Autoimmune haemolytic anaemia
     Dosage: 375 MG/M2 WEEKLY X4
     Route: 042
  2. RUXIENCE [Suspect]
     Active Substance: RITUXIMAB-PVVR
     Dosage: 810 MG WEEKLY X4
     Route: 042
     Dates: start: 20220412
  3. RUXIENCE [Suspect]
     Active Substance: RITUXIMAB-PVVR
     Dosage: 810 MG WEEKLY X4
     Route: 042
     Dates: start: 20220421
  4. AMLODIPINE [Concomitant]
     Active Substance: AMLODIPINE BESYLATE
     Dosage: 10 MG
     Route: 048
  5. AMLODIPINE BESYLATE\PERINDOPRIL ERBUMINE [Concomitant]
     Active Substance: AMLODIPINE BESYLATE\PERINDOPRIL ERBUMINE
     Dosage: 8 MG
     Route: 048
  6. CYCLOPHOSPHAMIDE [Concomitant]
     Active Substance: CYCLOPHOSPHAMIDE
     Dosage: 100 MG
     Route: 048
  7. HYDROCORTISONE [Concomitant]
     Active Substance: HYDROCORTISONE
     Dosage: 100 MG
  8. METHYLPREDNISOLONE [Concomitant]
     Active Substance: METHYLPREDNISOLONE
     Indication: Premedication
     Dosage: 100 MG
     Route: 042
     Dates: start: 20220421, end: 20220421
  9. MONTELUKAST [Concomitant]
     Active Substance: MONTELUKAST SODIUM
     Indication: Premedication
     Dosage: UNK
  10. MONTELUKAST [Concomitant]
     Active Substance: MONTELUKAST SODIUM
     Dosage: UNK
     Dates: start: 20220421, end: 20220421
  11. RUPATADINE [Concomitant]
     Active Substance: RUPATADINE
     Indication: Premedication
     Dosage: UNK
  12. RUPATADINE [Concomitant]
     Active Substance: RUPATADINE
     Dosage: UNK
     Dates: start: 20220421, end: 20220421
  13. BETAMETHASONE DIPROPIONATE\CLOTRIMAZOLE\GENTAMICIN SULFATE [Concomitant]
     Active Substance: BETAMETHASONE DIPROPIONATE\CLOTRIMAZOLE\GENTAMICIN SULFATE
     Dosage: 5 MG
     Route: 048

REACTIONS (5)
  - Nausea [Recovered/Resolved]
  - Dizziness [Recovered/Resolved]
  - Vision blurred [Recovered/Resolved]
  - Off label use [Unknown]
  - Blood pressure fluctuation [Unknown]
